FAERS Safety Report 14363448 (Version 2)
Quarter: 2018Q1

REPORT INFORMATION
  Report Type: Spontaneous
  Country: US (occurrence: US)
  Receive Date: 20180108
  Receipt Date: 20180222
  Transmission Date: 20180509
  Serious: Yes (Other)
  Sender: FDA-Public Use
  Company Number: US-GLAXOSMITHKLINE-US2018GSK001328

PATIENT
  Age: 71 Year
  Sex: Male

DRUGS (15)
  1. ANORO ELLIPTA [Suspect]
     Active Substance: UMECLIDINIUM BROMIDE\VILANTEROL TRIFENATATE
     Indication: DYSPNOEA
     Dosage: 1 PUFF(S), QD
     Dates: start: 20170310
  2. COUMADIN [Concomitant]
     Active Substance: WARFARIN SODIUM
  3. ACETAMINOPHEN. [Concomitant]
     Active Substance: ACETAMINOPHEN
  4. ALBUTEROL SULFATE. [Concomitant]
     Active Substance: ALBUTEROL SULFATE
  5. VALSARTAN. [Concomitant]
     Active Substance: VALSARTAN
  6. CARVEDILOL. [Concomitant]
     Active Substance: CARVEDILOL
  7. METHOTREXATE. [Concomitant]
     Active Substance: METHOTREXATE
  8. VITAMIN D3 [Concomitant]
     Active Substance: CHOLECALCIFEROL
  9. LORATADINE. [Concomitant]
     Active Substance: LORATADINE
  10. DIGOXIN. [Concomitant]
     Active Substance: DIGOXIN
  11. MYCOPHENOLATMOFETIL [Concomitant]
  12. ASPIRIN (BABY) [Concomitant]
     Active Substance: ASPIRIN
  13. LASIX [Concomitant]
     Active Substance: FUROSEMIDE
  14. CRANBERRY EXTRACT [Concomitant]
     Active Substance: CRANBERRY JUICE
  15. FOLIC ACID. [Concomitant]
     Active Substance: FOLIC ACID

REACTIONS (6)
  - Product quality issue [Unknown]
  - Accidental device ingestion [Unknown]
  - Productive cough [Not Recovered/Not Resolved]
  - Drug dose omission [Unknown]
  - Foreign body in respiratory tract [Unknown]
  - Foreign body aspiration [Unknown]

NARRATIVE: CASE EVENT DATE: 201712
